FAERS Safety Report 9243717 (Version 2)
Quarter: 2013Q2

REPORT INFORMATION
  Report Type: Spontaneous
  Country: US (occurrence: US)
  Receive Date: 20130422
  Receipt Date: 20130521
  Transmission Date: 20140414
  Serious: No
  Sender: FDA-Public Use
  Company Number: US-BIOGENIDEC-2013BI033748

PATIENT
  Sex: Female

DRUGS (2)
  1. TYSABRI [Suspect]
     Indication: MULTIPLE SCLEROSIS
     Route: 042
     Dates: end: 20120515
  2. TYSABRI [Suspect]
     Indication: MULTIPLE SCLEROSIS
     Route: 042
     Dates: start: 20130122

REACTIONS (6)
  - Asthenia [Recovered/Resolved]
  - Loss of control of legs [Recovered/Resolved]
  - Muscular weakness [Recovered/Resolved]
  - Fatigue [Recovered/Resolved]
  - Abasia [Recovered/Resolved]
  - Drug effect decreased [Recovered/Resolved]
